FAERS Safety Report 22621619 (Version 1)
Quarter: 2023Q2

REPORT INFORMATION
  Report Type: Spontaneous
  Country: US (occurrence: US)
  Receive Date: 20230620
  Receipt Date: 20230620
  Transmission Date: 20230722
  Serious: No
  Sender: FDA-Public Use
  Company Number: US-TEVA-2023-US-2893961

PATIENT
  Sex: Male

DRUGS (1)
  1. CLONIDINE HYDROCHLORIDE [Suspect]
     Active Substance: CLONIDINE HYDROCHLORIDE
     Indication: Hypertension
     Dosage: 0.1 MG
     Route: 065

REACTIONS (6)
  - Agitation [Unknown]
  - Nightmare [Unknown]
  - Psychotic disorder [Unknown]
  - Mental disorder [Unknown]
  - Feeling abnormal [Unknown]
  - Adverse drug reaction [Unknown]
